FAERS Safety Report 25807407 (Version 1)
Quarter: 2025Q3

REPORT INFORMATION
  Report Type: Spontaneous
  Country: US (occurrence: None)
  Receive Date: 20250916
  Receipt Date: 20250916
  Transmission Date: 20251020
  Serious: Yes (Death, Hospitalization)
  Sender: FDA-CTU
  Company Number: None

PATIENT
  Age: 90 Year
  Sex: Male
  Weight: 101 kg

DRUGS (1)
  1. APIXABAN [Suspect]
     Active Substance: APIXABAN
     Dosage: 5 MG BID PO
     Route: 048
     Dates: start: 20240606, end: 20250614

REACTIONS (3)
  - Cerebral haemorrhage [None]
  - Fall [None]
  - Brain herniation [None]

NARRATIVE: CASE EVENT DATE: 20250614
